FAERS Safety Report 9540211 (Version 2)
Quarter: 2014Q1

REPORT INFORMATION
  Report Type: Report from Study
  Country: US (occurrence: US)
  Receive Date: 20130920
  Receipt Date: 20140321
  Transmission Date: 20141002
  Serious: Yes (Hospitalization)
  Sender: FDA-Public Use
  Company Number: US-BRISTOL-MYERS SQUIBB COMPANY-19388743

PATIENT
  Age: 37 Year
  Sex: Female
  Weight: 56.6 kg

DRUGS (1)
  1. IPILIMUMAB [Suspect]
     Indication: MALIGNANT MELANOMA
     Dosage: LAST DOSE : 14/08/2013?180MG
     Route: 042
     Dates: start: 20130701

REACTIONS (2)
  - Colitis [Unknown]
  - Dehydration [Unknown]
